FAERS Safety Report 8574389-6 (Version None)
Quarter: 2012Q3

REPORT INFORMATION
  Report Type: 
  Country: None (occurrence: None)
  Receive Date: 20120806
  Receipt Date: 20120731
  Transmission Date: 20120928
  Serious: Yes (Other)
  Sender: FDA-Public Use
  Company Number: NO-ROCHE-1097686

PATIENT
  Sex: Female

DRUGS (4)
  1. DESLORATADINE [Concomitant]
  2. XOLAIR [Suspect]
     Indication: ASTHMA
     Dates: start: 20111001
  3. XOLAIR [Suspect]
     Indication: HYPERSENSITIVITY
     Dates: start: 20120731
  4. SYMBICORT [Concomitant]

REACTIONS (3)
  - TREMOR [None]
  - TACHYCARDIA [None]
  - BLOOD PRESSURE INCREASED [None]
